FAERS Safety Report 24050054 (Version 2)
Quarter: 2024Q3

REPORT INFORMATION
  Report Type: Spontaneous
  Country: FR (occurrence: FR)
  Receive Date: 20240704
  Receipt Date: 20240808
  Transmission Date: 20241016
  Serious: Yes (Hospitalization)
  Sender: NOVARTIS
  Company Number: None

PATIENT
  Age: 65 Year
  Sex: Male
  Weight: 102.4 kg

DRUGS (4)
  1. CYCLOSPORINE [Suspect]
     Active Substance: CYCLOSPORINE
     Indication: Stem cell transplant
     Dosage: UNK (VARIABLE SELON MONITORING)
     Route: 042
     Dates: start: 20240610
  2. THIOTEPA [Suspect]
     Active Substance: THIOTEPA
     Indication: Bone marrow conditioning regimen
     Dosage: UNK (5 MG/KG/JOUR)
     Route: 042
     Dates: start: 20240604, end: 20240604
  3. TREOSULFAN [Suspect]
     Active Substance: TREOSULFAN
     Indication: Bone marrow conditioning regimen
     Dosage: UNK (12 MG/M2/JOUR)
     Route: 042
     Dates: start: 20240607, end: 20240609
  4. FLUDARABINE PHOSPHATE [Suspect]
     Active Substance: FLUDARABINE PHOSPHATE
     Indication: Bone marrow conditioning regimen
     Dosage: UNK (30 MG/M2/JOUR)
     Route: 042
     Dates: start: 20240605, end: 20240609

REACTIONS (2)
  - Hyperbilirubinaemia [Recovering/Resolving]
  - Acute kidney injury [Not Recovered/Not Resolved]

NARRATIVE: CASE EVENT DATE: 20240617
